FAERS Safety Report 14980597 (Version 1)
Quarter: 2018Q2

REPORT INFORMATION
  Report Type: Report from Study
  Country: CN (occurrence: CN)
  Receive Date: 20180606
  Receipt Date: 20180606
  Transmission Date: 20180711
  Serious: Yes (Death)
  Sender: FDA-Public Use
  Company Number: CN-PFIZER INC-2018190601

PATIENT
  Age: 74 Year
  Sex: Female

DRUGS (5)
  1. VINDESINE [Suspect]
     Active Substance: VINDESINE
     Indication: DIFFUSE LARGE B-CELL LYMPHOMA
     Dosage: UNK, CYCLIC (2 - 8 COURSES)
  2. DEXAMETHASONE. [Suspect]
     Active Substance: DEXAMETHASONE
     Indication: DIFFUSE LARGE B-CELL LYMPHOMA
     Dosage: UNK, CYCLIC (2 - 8 COURSES)
  3. EPIRUBICIN HCL [Suspect]
     Active Substance: EPIRUBICIN HYDROCHLORIDE
     Indication: DIFFUSE LARGE B-CELL LYMPHOMA
     Dosage: UNK, CYCLIC (2 - 8 COURSES)
  4. PREDNISOLONE. [Suspect]
     Active Substance: PREDNISOLONE
     Indication: DIFFUSE LARGE B-CELL LYMPHOMA
     Dosage: UNK, CYCLIC (2 - 8 COURSES)
  5. CYCLOPHOSPHAMIDE. [Suspect]
     Active Substance: CYCLOPHOSPHAMIDE
     Indication: DIFFUSE LARGE B-CELL LYMPHOMA
     Dosage: UNK UNK, CYCLIC (2 - 8 COURSES)

REACTIONS (3)
  - Bone marrow failure [Fatal]
  - Lung infection [Fatal]
  - Cardiac failure [Fatal]
